FAERS Safety Report 7831600-4 (Version None)
Quarter: 2011Q4

REPORT INFORMATION
  Report Type: 
  Country: None (occurrence: None)
  Receive Date: 20111019
  Receipt Date: 20111005
  Transmission Date: 20120403
  Serious: Yes (Hospitalization, Congenital Anomaly)
  Sender: FDA-Public Use
  Company Number: 1000024638

PATIENT
  Sex: Female
  Weight: 2.5 kg

DRUGS (1)
  1. ESCITALOPRAM OXALATE [Suspect]
     Dosage: 5 MG (5 MG, 1 IN 1 D), TRANSPLACENTAL
     Route: 064

REACTIONS (5)
  - PREMATURE BABY [None]
  - HIP DYSPLASIA [None]
  - CAESAREAN SECTION [None]
  - CONGENITAL ANOMALY [None]
  - MATERNAL DRUGS AFFECTING FOETUS [None]
